FAERS Safety Report 20145764 (Version 3)
Quarter: 2022Q1

REPORT INFORMATION
  Report Type: Spontaneous
  Country: IT (occurrence: IT)
  Receive Date: 20211203
  Receipt Date: 20220223
  Transmission Date: 20220424
  Serious: Yes (Hospitalization)
  Sender: FDA-Public Use
  Company Number: None

PATIENT
  Age: 62 Year
  Sex: Female

DRUGS (5)
  1. MIRTAZAPINE [Suspect]
     Active Substance: MIRTAZAPINE
     Indication: Intentional self-injury
     Dosage: 3600 MILLIGRAM (MG), TOTAL, ABUSE / MISUSE
     Route: 048
     Dates: start: 20210924, end: 20210924
  2. LEVOTHYROXINE SODIUM [Concomitant]
     Active Substance: LEVOTHYROXINE SODIUM
     Dosage: 75 MICROGRAM (UG)
  3. PAROXETINE [Concomitant]
     Active Substance: PAROXETINE
     Dosage: 30 MILLIGRAM (MG)
  4. GABAPENTIN [Concomitant]
     Active Substance: GABAPENTIN
     Dosage: 400 MILLIGRAM (MG)
  5. RIVOTRIL [Concomitant]
     Active Substance: CLONAZEPAM
     Dosage: 20 MILLIGRAM (MG)
     Route: 048
     Dates: start: 20210924, end: 20210924

REACTIONS (2)
  - Hypertensive crisis [Recovering/Resolving]
  - Drug abuse [Recovering/Resolving]

NARRATIVE: CASE EVENT DATE: 20210924
